FAERS Safety Report 8070131-6 (Version None)
Quarter: 2012Q1

REPORT INFORMATION
  Report Type: 
  Country: None (occurrence: None)
  Receive Date: 20120125
  Receipt Date: 20120117
  Transmission Date: 20120608
  Serious: Yes (Other)
  Sender: FDA-Public Use
  Company Number: US-ROCHE-1019897

PATIENT
  Sex: Male
  Weight: 105 kg

DRUGS (1)
  1. AVASTIN [Suspect]
     Indication: RENAL CELL CARCINOMA
     Dosage: OVER 30-90 MIN ON DAYS 1 AND 15, CYCLE 28 DAYS
     Route: 042
     Dates: start: 20081030

REACTIONS (1)
  - HYPOPHOSPHATAEMIA [None]
